FAERS Safety Report 6908250-7 (Version None)
Quarter: 2010Q3

REPORT INFORMATION
  Report Type: 
  Country: None (occurrence: None)
  Receive Date: 20100803
  Receipt Date: 20100727
  Transmission Date: 20110219
  Serious: Yes (Other)
  Sender: FDA-Public Use
  Company Number: 016254

PATIENT
  Sex: Female

DRUGS (1)
  1. KEPPRA [Suspect]
     Dosage: (1 G 1X/12 HOURS, WAS GIVEN 1 G Q12 ON 11/JUN/2010 INTRAVENOUS)
     Route: 042

REACTIONS (1)
  - WHITE BLOOD CELL COUNT DECREASED [None]
